FAERS Safety Report 9444500 (Version 1)
Quarter: 2013Q3

REPORT INFORMATION
  Report Type: Spontaneous
  Country: US (occurrence: None)
  Receive Date: 20130805
  Receipt Date: 20130805
  Transmission Date: 20140515
  Serious: Yes (Other)
  Sender: FDA-Public Use
  Company Number: TPA2013A07249

PATIENT
  Age: 37 Year
  Sex: Female

DRUGS (2)
  1. EDARBYCLOR [Suspect]
     Indication: HYPERTENSION
     Dosage: 1 IN 1D PER ORAL
     Route: 048
     Dates: start: 20130401, end: 20130724
  2. SULFONAMIDE [Concomitant]

REACTIONS (1)
  - Renal failure [None]
